FAERS Safety Report 9900848 (Version 2)
Quarter: 2014Q1

REPORT INFORMATION
  Report Type: Spontaneous
  Country: US (occurrence: US)
  Receive Date: 20140217
  Receipt Date: 20140225
  Transmission Date: 20141002
  Serious: Yes (Other)
  Sender: FDA-Public Use
  Company Number: US-PERRIGO-14US001519

PATIENT
  Age: 76 Year
  Sex: Female
  Weight: 52.61 kg

DRUGS (5)
  1. LORATADINE 10 MG 612 [Suspect]
     Indication: SEASONAL ALLERGY
     Dosage: 1/2 TABLET, SINGLE
     Route: 048
     Dates: start: 20140207, end: 20140207
  2. FLONASE [Concomitant]
     Indication: SEASONAL ALLERGY
     Dosage: 1 SPRAY IN EACH NOSTRIL, QD
     Route: 045
     Dates: start: 201401
  3. ALPRAZOLAM [Concomitant]
     Indication: PRODUCT USED FOR UNKNOWN INDICATION
     Dosage: 5 MG, UNKNOWN
     Route: 065
     Dates: start: 2013
  4. CRESTOR [Concomitant]
     Indication: BLOOD CHOLESTEROL INCREASED
     Dosage: 10 MG, UNKNOWN
     Route: 065
     Dates: start: 2013
  5. LEVOTHYROXINE [Concomitant]
     Indication: THYROID DISORDER
     Dosage: 50 MCG, UNKNOWN
     Route: 065
     Dates: start: 2012

REACTIONS (4)
  - Loss of consciousness [Recovered/Resolved]
  - Faecal incontinence [Recovered/Resolved]
  - Underdose [Unknown]
  - Wrong technique in drug usage process [Unknown]
